FAERS Safety Report 17180330 (Version 1)
Quarter: 2019Q4

REPORT INFORMATION
  Report Type: Spontaneous
  Country: US (occurrence: US)
  Receive Date: 20191219
  Receipt Date: 20191219
  Transmission Date: 20200122
  Serious: No
  Sender: FDA-Public Use
  Company Number: US-UCBSA-8042191

PATIENT
  Age: 29 Year
  Sex: Female
  Weight: 58 kg

DRUGS (6)
  1. PENTASA [Concomitant]
     Active Substance: MESALAMINE
     Indication: ARTHRALGIA
     Dosage: 500 MG, 4X/DAY (QID)
     Dates: start: 2008
  2. PENTASA [Concomitant]
     Active Substance: MESALAMINE
     Indication: INFLAMMATION
  3. ESCITALOPRAM [Concomitant]
     Active Substance: ESCITALOPRAM OXALATE
     Indication: ANXIETY
     Dosage: 10 MG, ONCE DAILY (QD)
     Dates: start: 2013
  4. OMEPRAZOLE. [Concomitant]
     Active Substance: OMEPRAZOLE
     Indication: GASTROOESOPHAGEAL REFLUX DISEASE
     Dosage: 20 MG, ONCE DAILY (QD)
     Dates: start: 2008
  5. CIMZIA [Suspect]
     Active Substance: CERTOLIZUMAB PEGOL
     Indication: CROHN^S DISEASE
     Dosage: 2 DOSES OF PRE-FILLED SYRINGES
     Route: 058
     Dates: start: 2008
  6. VALTREX [Concomitant]
     Active Substance: VALACYCLOVIR HYDROCHLORIDE
     Indication: ORAL HERPES
     Dosage: DOSE FREQ.: DAILY
     Route: 048
     Dates: start: 200805

REACTIONS (6)
  - Breast pain [Recovered/Resolved]
  - Arthralgia [Unknown]
  - Product dose omission [Unknown]
  - Diarrhoea [Recovering/Resolving]
  - Abdominal pain [Recovering/Resolving]
  - Gastrointestinal pain [Unknown]

NARRATIVE: CASE EVENT DATE: 200812
